FAERS Safety Report 15818648 (Version 10)
Quarter: 2022Q1

REPORT INFORMATION
  Report Type: Spontaneous
  Country: DE (occurrence: DE)
  Receive Date: 20190113
  Receipt Date: 20220119
  Transmission Date: 20220423
  Serious: Yes (Hospitalization, Other)
  Sender: FDA-Public Use
  Company Number: PHHY2019DE005383

PATIENT
  Sex: Female
  Weight: 78 kg

DRUGS (30)
  1. VALSARTAN [Suspect]
     Active Substance: VALSARTAN
     Indication: Essential hypertension
     Dosage: 80 MG, QD (1 TABLET PER DAY) (MORNING)
     Route: 048
     Dates: start: 20140926, end: 201806
  2. VALSARTAN [Suspect]
     Active Substance: VALSARTAN
     Dosage: 80 MG, QD (1 TABLET PER DAY) (MORNING)
     Route: 048
     Dates: start: 201601, end: 201807
  3. IODINE [Concomitant]
     Active Substance: IODINE
     Indication: Product used for unknown indication
     Dosage: 0.5 DF, QD (MORNING) (HALF A TABLET 200 ?G)
     Route: 065
  4. IODINE [Concomitant]
     Active Substance: IODINE
     Dosage: 200 DF, QD  ((?G)(1X, PER DAY)
     Route: 065
  5. FOSTER [Concomitant]
     Active Substance: BECLOMETHASONE\FORMOTEROL
     Indication: Asthma
     Dosage: 200 MG, QD
     Route: 065
  6. FOSTER [Concomitant]
     Active Substance: BECLOMETHASONE\FORMOTEROL
     Dosage: UNK, QD
     Route: 065
  7. PANTOZOL [Concomitant]
     Active Substance: PANTOPRAZOLE SODIUM
     Indication: Product used for unknown indication
     Dosage: 40 MG, BID (MORNING AND EVENING)
     Route: 048
  8. PANTOZOL [Concomitant]
     Active Substance: PANTOPRAZOLE SODIUM
     Dosage: 40 MG, QD (AS NEEDED)
     Route: 048
  9. CHOLECALCIFEROL [Concomitant]
     Active Substance: CHOLECALCIFEROL
     Indication: Product used for unknown indication
     Dosage: 20000 IU, EVERY 14 DAYS (1X 20.000 I.U, CAPSULES/ORAL SOLUTIONS IN THE MORNING)
     Route: 065
     Dates: start: 20200628
  10. DIOVAN [Concomitant]
     Active Substance: VALSARTAN
     Indication: Product used for unknown indication
     Dosage: 80 MG, QD (ONE IN THE MORNING AND ONE IN THE EVENING)
     Route: 065
  11. DIOVAN [Concomitant]
     Active Substance: VALSARTAN
     Dosage: 80 MG, QD
     Route: 065
  12. RIOPAN [Concomitant]
     Indication: Product used for unknown indication
     Dosage: UNK UNK, PRN
     Route: 065
  13. FORMOTEROL [Concomitant]
     Active Substance: FORMOTEROL
     Indication: Asthma
     Dosage: 1X100/6MG, 1 PUFF DAILY
     Route: 065
  14. POLYETHYLENE GLYCOL 3350\POTASSIUM CHLORIDE\SODIUM BICARBONATE\SODIUM [Concomitant]
     Active Substance: POLYETHYLENE GLYCOL 3350\POTASSIUM CHLORIDE\SODIUM BICARBONATE\SODIUM CHLORIDE
     Indication: Product used for unknown indication
     Dosage: 1 DF, QD (MORNING)
     Route: 065
  15. BUTYLSCOPOLAMINE BROMIDE [Concomitant]
     Active Substance: BUTYLSCOPOLAMINE BROMIDE
     Indication: Product used for unknown indication
     Dosage: 1 DF(MAX 2 DF) (DRAGEE)
     Route: 065
  16. HYDROCHLOROTHIAZIDE\VALSARTAN [Concomitant]
     Active Substance: HYDROCHLOROTHIAZIDE\VALSARTAN
     Indication: Product used for unknown indication
     Dosage: UNK
     Route: 065
  17. KALIUM-MAGNESIUM [Concomitant]
     Indication: Product used for unknown indication
     Dosage: UNK (1 IN THE MORNING, 2 AT NOON)
     Route: 065
  18. MAGNESIUM [Concomitant]
     Active Substance: MAGNESIUM
     Indication: Product used for unknown indication
     Dosage: UNK, (400), EVERY SECOND DAY, IN THE MORNING
     Route: 065
  19. IODINE [Concomitant]
     Active Substance: IODINE
     Indication: Product used for unknown indication
     Dosage: 0.2 MG, QD (200 HEXAL) IN THE MORNING
     Route: 065
  20. BECLOMETHASONE DIPROPIONATE [Concomitant]
     Active Substance: BECLOMETHASONE DIPROPIONATE
     Indication: Asthma
     Dosage: 1X100/6MG, 1 PUFF DAILY
     Route: 065
  21. LATANOPROST [Concomitant]
     Active Substance: LATANOPROST
     Indication: Glaucoma
     Dosage: UNK, QD (0.01 MG/0.2 ML) IN THE EVENING, EVERY EYE
     Route: 065
  22. LATANOPROST [Concomitant]
     Active Substance: LATANOPROST
     Dosage: UNK
     Route: 065
  23. FONDAPARINUX [Concomitant]
     Active Substance: FONDAPARINUX
     Indication: Thrombosis prophylaxis
     Dosage: 2.5 MG, QD
     Route: 058
  24. MAGNESIUM CARBONATE;POTASSIUM [Concomitant]
     Indication: Product used for unknown indication
     Dosage: UNK (1 PER DAY, MORMING)
     Route: 065
  25. PANTOPRAZOLE SODIUM [Concomitant]
     Active Substance: PANTOPRAZOLE SODIUM
     Indication: Asthma
     Dosage: 20 MG, QD (1 DAILY, MORNING)
     Route: 065
  26. PANTOPRAZOLE SODIUM [Concomitant]
     Active Substance: PANTOPRAZOLE SODIUM
     Dosage: 40 MG, QD
     Route: 065
  27. PANTOPRAZOLE SODIUM [Concomitant]
     Active Substance: PANTOPRAZOLE SODIUM
     Dosage: 20 MG
     Route: 048
  28. DORZOVISION [Concomitant]
     Indication: Product used for unknown indication
     Dosage: UNK, BID
     Route: 065
  29. MAGNESIUM CHLORIDE;POTASSIUM;POTASS [Concomitant]
     Indication: Product used for unknown indication
     Dosage: UNK, QD
     Route: 065
  30. XANAFLU [Concomitant]
     Active Substance: INFLUENZA VIRUS VACCINE
     Indication: Product used for unknown indication
     Dosage: UNK
     Route: 065
     Dates: start: 20171114, end: 20171114

REACTIONS (84)
  - Adenocarcinoma [Recovered/Resolved]
  - Abdominal pain upper [Unknown]
  - Faeces discoloured [Unknown]
  - Chromaturia [Unknown]
  - Vomiting [Unknown]
  - Mucosal haemorrhage [Unknown]
  - Dehydration [Unknown]
  - Diarrhoea [Unknown]
  - Nasopharyngitis [Recovered/Resolved]
  - Nasopharyngitis [Unknown]
  - Jaundice cholestatic [Unknown]
  - Obstructive pancreatitis [Recovered/Resolved]
  - Nephritis [Unknown]
  - Nausea [Unknown]
  - General physical health deterioration [Unknown]
  - Colon cancer [Recovered/Resolved]
  - Colon neoplasm [Unknown]
  - Change of bowel habit [Unknown]
  - Foot deformity [Unknown]
  - Exostosis [Recovering/Resolving]
  - Arrhythmia [Unknown]
  - Macular degeneration [Unknown]
  - Sinus node dysfunction [Unknown]
  - Myocardial ischaemia [Unknown]
  - Respiratory tract infection [Unknown]
  - Large intestine polyp [Recovered/Resolved]
  - Gastritis erosive [Unknown]
  - Gastric mucosa erythema [Unknown]
  - Appendicitis [Unknown]
  - Renal atrophy [Unknown]
  - Cauda equina syndrome [Unknown]
  - Osteoarthritis [Unknown]
  - Joint destruction [Unknown]
  - Cardiac failure [Unknown]
  - Colon cancer [Unknown]
  - Asthenia [Unknown]
  - Haemorrhoids [Unknown]
  - Hiatus hernia [Unknown]
  - Diverticulum intestinal [Unknown]
  - Cardiomegaly [Unknown]
  - Weight decreased [Unknown]
  - Renal cyst [Unknown]
  - Allergy to metals [Unknown]
  - Chest discomfort [Unknown]
  - Anal haemorrhage [Unknown]
  - Anal skin tags [Unknown]
  - Anaemia [Unknown]
  - Dyschezia [Recovering/Resolving]
  - Tendonitis [Unknown]
  - Fall [Unknown]
  - Muscle atrophy [Unknown]
  - Sciatica [Unknown]
  - Pain [Unknown]
  - Dyspepsia [Unknown]
  - Hyperuricaemia [Unknown]
  - Gamma-glutamyltransferase increased [Unknown]
  - Flatulence [Unknown]
  - Tinnitus [Unknown]
  - Leukocytosis [Unknown]
  - Iron deficiency anaemia [Unknown]
  - Lymphoedema [Unknown]
  - Urinary tract infection [Unknown]
  - Enzyme level abnormal [Unknown]
  - Enthesopathy [Unknown]
  - Goitre [Unknown]
  - Dyspnoea exertional [Unknown]
  - Aortic dilatation [Unknown]
  - Spinal osteoarthritis [Unknown]
  - Thoracic outlet syndrome [Unknown]
  - Cough [Unknown]
  - Abdominal pain lower [Unknown]
  - Oedema peripheral [Unknown]
  - Colon adenoma [Unknown]
  - Dysplasia [Unknown]
  - Hypercholesterolaemia [Unknown]
  - Oedema [Unknown]
  - Fluid retention [Unknown]
  - Chronic gastritis [Unknown]
  - Blood creatinine increased [Unknown]
  - Spinal disorder [Unknown]
  - Hyperkinesia [Unknown]
  - Bowel movement irregularity [Unknown]
  - Abdominal pain [Unknown]
  - Food intolerance [Unknown]

NARRATIVE: CASE EVENT DATE: 20150101
